FAERS Safety Report 6764433-0 (Version None)
Quarter: 2010Q2

REPORT INFORMATION
  Report Type: 
  Country: None (occurrence: None)
  Receive Date: 20100610
  Receipt Date: 20100603
  Transmission Date: 20101027
  Serious: Yes (Other)
  Sender: FDA-Public Use
  Company Number: US-RB-010608-10

PATIENT
  Age: 51 Year
  Sex: Female

DRUGS (4)
  1. SUBOXONE [Suspect]
     Route: 060
     Dates: start: 20100519
  2. SUBOXONE [Suspect]
     Route: 060
     Dates: start: 20100501
  3. SYNTHROID [Concomitant]
     Dosage: UNKNOWN DOSING DETAILS
     Route: 065
  4. GABAPENTIN [Suspect]
     Indication: DRUG WITHDRAWAL SYNDROME
     Dosage: UNKNOWN DOSING DETAILS
     Route: 065
     Dates: start: 20100519, end: 20100529

REACTIONS (11)
  - AGITATION [None]
  - ANXIETY [None]
  - CONSTIPATION [None]
  - CRYING [None]
  - DECREASED APPETITE [None]
  - FEAR [None]
  - FEELING ABNORMAL [None]
  - FEELING COLD [None]
  - HALLUCINATION [None]
  - INSOMNIA [None]
  - TREMOR [None]
